FAERS Safety Report 5390637-8 (Version None)
Quarter: 2007Q3

REPORT INFORMATION
  Report Type: 
  Country: None (occurrence: None)
  Receive Date: 20070712
  Receipt Date: 20070604
  Transmission Date: 20080115
  Serious: Yes (Life-Threatening)
  Sender: FDA-Public Use
  Company Number: 6034715

PATIENT
  Sex: Female

DRUGS (1)
  1. CIPROFLOXACIN [Suspect]
     Indication: INFECTION
     Dosage: (500 MG)
     Route: 048
     Dates: start: 20070511, end: 20070512

REACTIONS (2)
  - LIP SWELLING [None]
  - THROAT TIGHTNESS [None]
